FAERS Safety Report 12755187 (Version 5)
Quarter: 2016Q4

REPORT INFORMATION
  Report Type: Spontaneous
  Country: US (occurrence: US)
  Receive Date: 20160916
  Receipt Date: 20161222
  Transmission Date: 20170207
  Serious: Yes (Death, Hospitalization, Other)
  Sender: FDA-Public Use
  Company Number: US-BAUSCH-BL-2016-021930

PATIENT
  Age: 58 Year
  Sex: Male
  Weight: 77 kg

DRUGS (1)
  1. PROVENGE [Suspect]
     Active Substance: SIPULEUCEL-T
     Indication: PROSTATE CANCER
     Route: 042
     Dates: start: 20160826, end: 20160826

REACTIONS (6)
  - Death [Fatal]
  - Pain [Unknown]
  - Vein collapse [Unknown]
  - Prostatic specific antigen increased [Unknown]
  - Dehydration [Unknown]
  - Pallor [Unknown]

NARRATIVE: CASE EVENT DATE: 201609
